FAERS Safety Report 4266734-7 (Version None)
Quarter: 2004Q1

REPORT INFORMATION
  Report Type: 
  Country: None (occurrence: None)
  Receive Date: 20040108
  Receipt Date: 20031118
  Transmission Date: 20041129
  Serious: Yes (Life-Threatening)
  Sender: FDA-Public Use
  Company Number: JP-GLAXOSMITHKLINE-B0315663A

PATIENT
  Age: 41 Year
  Sex: Female
  Weight: 51 kg

DRUGS (5)
  1. PAXIL [Suspect]
     Indication: DEPRESSION
     Route: 048
     Dates: end: 20031114
  2. ETIZOLAM [Suspect]
     Route: 048
     Dates: start: 20031114, end: 20031114
  3. ESTAZOLAM [Concomitant]
     Route: 048
  4. TIZANIDINE HYDROCHLORIDE [Concomitant]
     Route: 048
  5. FLUVOXAMINE MALEATE [Concomitant]
     Route: 048

REACTIONS (9)
  - BLOOD CREATINE PHOSPHOKINASE INCREASED [None]
  - BLOOD PRESSURE FLUCTUATION [None]
  - COMA [None]
  - HYPOXIA [None]
  - INTENTIONAL OVERDOSE [None]
  - PYREXIA [None]
  - RESPIRATORY FAILURE [None]
  - SEROTONIN SYNDROME [None]
  - SUICIDE ATTEMPT [None]
